FAERS Safety Report 24800696 (Version 8)
Quarter: 2025Q3

REPORT INFORMATION
  Report Type: Spontaneous
  Country: JP (occurrence: JP)
  Receive Date: 20250102
  Receipt Date: 20250701
  Transmission Date: 20251021
  Serious: Yes (Death, Hospitalization)
  Sender: JOHNSON AND JOHNSON
  Company Number: JP-JNJFOC-20241260297

PATIENT
  Age: 83 Year
  Sex: Female

DRUGS (9)
  1. OPSUMIT [Suspect]
     Active Substance: MACITENTAN
     Indication: Pulmonary arterial hypertension
     Route: 048
     Dates: start: 20241028, end: 20241211
  2. UPTRAVI [Suspect]
     Active Substance: SELEXIPAG
     Indication: Pulmonary arterial hypertension
     Route: 048
     Dates: start: 20241001, end: 20241211
  3. UPTRAVI [Suspect]
     Active Substance: SELEXIPAG
     Route: 048
     Dates: start: 20241001, end: 2024
  4. UPTRAVI [Suspect]
     Active Substance: SELEXIPAG
     Route: 048
     Dates: start: 202412, end: 20241211
  5. DAYVIGO [Concomitant]
     Active Substance: LEMBOREXANT
     Indication: Product used for unknown indication
  6. SAMSCA [Concomitant]
     Active Substance: TOLVAPTAN
     Indication: Product used for unknown indication
     Route: 048
  7. PIMOBENDAN [Concomitant]
     Active Substance: PIMOBENDAN
     Indication: Product used for unknown indication
  8. AZOSEMIDE [Concomitant]
     Active Substance: AZOSEMIDE
     Indication: Product used for unknown indication
  9. SPIRONOLACTONE [Concomitant]
     Active Substance: SPIRONOLACTONE
     Indication: Product used for unknown indication

REACTIONS (4)
  - Pulmonary arterial hypertension [Fatal]
  - Decreased appetite [Recovering/Resolving]
  - Dehydration [Unknown]
  - Condition aggravated [Unknown]

NARRATIVE: CASE EVENT DATE: 20241006
